FAERS Safety Report 7594556-8 (Version None)
Quarter: 2011Q2

REPORT INFORMATION
  Report Type: 
  Country: None (occurrence: None)
  Receive Date: 20110628
  Receipt Date: 20110616
  Transmission Date: 20111010
  Serious: Yes (Death, Hospitalization)
  Sender: FDA-Public Use
  Company Number: 118579

PATIENT
  Age: 37 Year
  Sex: Male

DRUGS (2)
  1. BLEOMYCIN SULFATE [Suspect]
     Indication: TESTIS CANCER
  2. CISPLATIN [Suspect]
     Indication: TESTIS CANCER

REACTIONS (7)
  - FALL [None]
  - CARDIAC ARREST [None]
  - ACUTE MYOCARDIAL INFARCTION [None]
  - CORONARY ARTERY THROMBOSIS [None]
  - SUDDEN CARDIAC DEATH [None]
  - ARTERIOSCLEROSIS CORONARY ARTERY [None]
  - CORONARY ARTERY OCCLUSION [None]
